FAERS Safety Report 4818621-0 (Version None)
Quarter: 2005Q4

REPORT INFORMATION
  Report Type: 
  Country: None (occurrence: None)
  Receive Date: 20051101
  Receipt Date: 20051025
  Transmission Date: 20060501
  Serious: Yes (Hospitalization)
  Sender: FDA-Public Use
  Company Number: 163-20785-03100441

PATIENT
  Age: 54 Year
  Sex: Male
  Weight: 73 kg

DRUGS (8)
  1. THALOMID [Suspect]
     Indication: HEPATIC NEOPLASM MALIGNANT
     Dosage: 50 - 800MG, QD, ORAL
     Route: 048
     Dates: start: 20030127, end: 20040101
  2. THALOMID [Suspect]
  3. AMARYL [Concomitant]
  4. OXYCODONE HCL [Concomitant]
  5. VIOXX [Concomitant]
  6. MANESIUM (MAGNESIUM) [Concomitant]
  7. ETOPOSIDE [Concomitant]
  8. CAPECITABINE (CAPECITABINE) [Concomitant]

REACTIONS (15)
  - ATELECTASIS [None]
  - BLOOD CALCIUM DECREASED [None]
  - BLOOD GLUCOSE INCREASED [None]
  - BLOOD POTASSIUM DECREASED [None]
  - BREATH SOUNDS ABNORMAL [None]
  - FEBRILE NEUTROPENIA [None]
  - HEPATOMEGALY [None]
  - INTERNATIONAL NORMALISED RATIO INCREASED [None]
  - LIVER DISORDER [None]
  - LUNG INFILTRATION [None]
  - PANCYTOPENIA [None]
  - PLEURAL EFFUSION [None]
  - PNEUMOTHORAX [None]
  - PO2 DECREASED [None]
  - POST PROCEDURAL COMPLICATION [None]
